FAERS Safety Report 20863209 (Version 2)
Quarter: 2022Q2

REPORT INFORMATION
  Report Type: Other
  Country: US (occurrence: None)
  Receive Date: 20220523
  Receipt Date: 20220608
  Transmission Date: 20220721
  Serious: Yes (Hospitalization, Other)
  Sender: FDA-Public Use
  Company Number: US-ROCHE-2634357

PATIENT
  Age: 64 Year
  Sex: Female

DRUGS (2)
  1. OCREVUS [Suspect]
     Active Substance: OCRELIZUMAB
     Indication: Multiple sclerosis
     Dosage: (PRESCRIBED AS 300 MG (2 VIALS) IV 600 MG EVERY 6 MONTHS)?DATE OF TREATMENT: 10/OCT/2019, 19/APR/202
     Route: 065
     Dates: start: 20180919
  2. OCREVUS [Suspect]
     Active Substance: OCRELIZUMAB
     Indication: Relapsing-remitting multiple sclerosis

REACTIONS (8)
  - Trigeminal neuralgia [Unknown]
  - Urinary tract infection [Unknown]
  - Fall [Unknown]
  - Confusional state [Unknown]
  - Rhinorrhoea [Unknown]
  - Dysphonia [Unknown]
  - Vertigo [Unknown]
  - Hand fracture [Unknown]

NARRATIVE: CASE EVENT DATE: 20211101
